FAERS Safety Report 4679047-6 (Version None)
Quarter: 2005Q2

REPORT INFORMATION
  Report Type: 
  Country: None (occurrence: None)
  Receive Date: 20050527
  Receipt Date: 20050418
  Transmission Date: 20051028
  Serious: Yes (Other)
  Sender: FDA-Public Use
  Company Number: PHEH2005US02912

PATIENT
  Age: 31 Year
  Sex: Female
  Weight: 87.5 kg

DRUGS (6)
  1. ZELNORM [Suspect]
     Indication: IRRITABLE BOWEL SYNDROME
     Dosage: 6 MG, QD, ORAL;  6 MG, BID, ORAL
     Route: 048
     Dates: start: 20031124, end: 20040108
  2. ZELNORM [Suspect]
     Indication: IRRITABLE BOWEL SYNDROME
     Dosage: 6 MG, QD, ORAL;  6 MG, BID, ORAL
     Route: 048
     Dates: start: 20040108, end: 20040219
  3. ZYRTEC [Concomitant]
  4. RHINOCORT [Concomitant]
  5. ASTELIN [Concomitant]
  6. GUAIFENESIN (GUAIFENESIN) [Concomitant]

REACTIONS (6)
  - DIZZINESS [None]
  - DYSPNOEA [None]
  - HEART RATE INCREASED [None]
  - PULMONARY FUNCTION TEST ABNORMAL [None]
  - RESPIRATORY RATE INCREASED [None]
  - SINUS TACHYCARDIA [None]
